FAERS Safety Report 9060115 (Version 1)
Quarter: 2013Q1

REPORT INFORMATION
  Report Type: Spontaneous
  Country: US (occurrence: None)
  Receive Date: 20130207
  Receipt Date: 20130207
  Transmission Date: 20140127
  Serious: Yes (Other)
  Sender: FDA-Public Use
  Company Number: None

PATIENT
  Age: 52 Year
  Sex: Female

DRUGS (1)
  1. ZELBORAF 240MG [Suspect]
     Route: 048
     Dates: start: 20121126, end: 20130117

REACTIONS (5)
  - Liver function test abnormal [None]
  - Jaundice [None]
  - Chromaturia [None]
  - Decreased appetite [None]
  - Chest discomfort [None]
